FAERS Safety Report 8483254-4 (Version None)
Quarter: 2012Q3

REPORT INFORMATION
  Report Type: 
  Country: None (occurrence: None)
  Receive Date: 20120702
  Receipt Date: 20120622
  Transmission Date: 20120928
  Serious: Yes (Other)
  Sender: FDA-Public Use
  Company Number: US-ACTELION-A-US2012-66654

PATIENT

DRUGS (12)
  1. CALCIUM +D [Concomitant]
  2. NORVASC [Concomitant]
  3. ASTEPRO [Concomitant]
  4. PROBIOTIC [Concomitant]
  5. XALATAN [Concomitant]
  6. TRACLEER [Suspect]
     Indication: PULMONARY ARTERIAL HYPERTENSION
     Dosage: UNK
     Route: 048
     Dates: start: 20111201, end: 20120528
  7. CLARITIN [Concomitant]
  8. PLAVIX [Concomitant]
  9. MULTIPLE VITAMINS [Concomitant]
  10. FERROUS SULFATE TAB [Concomitant]
  11. ASPIRIN [Concomitant]
  12. FISH OIL [Concomitant]

REACTIONS (4)
  - PRURITUS GENERALISED [None]
  - RASH [None]
  - OEDEMA PERIPHERAL [None]
  - FOOT FRACTURE [None]
